FAERS Safety Report 6243414-X (Version None)
Quarter: 2009Q2

REPORT INFORMATION
  Report Type: 
  Country: None (occurrence: None)
  Receive Date: 20090622
  Receipt Date: 20090622
  Transmission Date: 20091009
  Serious: No
  Sender: FDA-Public Use
  Company Number: None

PATIENT
  Sex: Female
  Weight: 65.7716 kg

DRUGS (1)
  1. ZICAM ADULT SWABS MATTRIXX [Suspect]
     Indication: NASOPHARYNGITIS
     Dosage: 1 SWAB EVERY 4-6 HOURS NASAL
     Route: 045

REACTIONS (2)
  - EYE IRRITATION [None]
  - PAROSMIA [None]
